FAERS Safety Report 5827010-1 (Version None)
Quarter: 2008Q3

REPORT INFORMATION
  Report Type: 
  Country: None (occurrence: None)
  Receive Date: 20080730
  Receipt Date: 20080729
  Transmission Date: 20090109
  Serious: Yes (Hospitalization)
  Sender: FDA-Public Use
  Company Number: A0740110A

PATIENT
  Age: 56 Year
  Sex: Male

DRUGS (2)
  1. ALLI [Suspect]
     Route: 048
  2. CENTRUM MULTIVITAMIN [Concomitant]

REACTIONS (4)
  - GROIN PAIN [None]
  - INGUINAL HERNIA [None]
  - PHARMACEUTICAL PRODUCT COMPLAINT [None]
  - STAPHYLOCOCCAL INFECTION [None]
